FAERS Safety Report 24932126 (Version 1)
Quarter: 2025Q1

REPORT INFORMATION
  Report Type: Report from Study
  Country: US (occurrence: US)
  Receive Date: 20250205
  Receipt Date: 20250205
  Transmission Date: 20250409
  Serious: No
  Sender: EXELIXIS
  Company Number: US-EXELIXIS-CABO-24079714

PATIENT
  Age: 62 Year
  Sex: Male

DRUGS (3)
  1. CABOMETYX [Suspect]
     Active Substance: CABOZANTINIB S-MALATE
     Indication: Renal cancer
     Dosage: 60 MG, QD
     Route: 048
     Dates: start: 202407
  2. CABOMETYX [Suspect]
     Active Substance: CABOZANTINIB S-MALATE
     Route: 048
  3. LENVIMA [Suspect]
     Active Substance: LENVATINIB
     Indication: Renal cancer

REACTIONS (7)
  - Dysphagia [Unknown]
  - Blood pressure systolic increased [Unknown]
  - Stomatitis [Unknown]
  - Rash [Unknown]
  - Tongue disorder [Unknown]
  - Oropharyngeal pain [Unknown]
  - Skin ulcer [Unknown]

NARRATIVE: CASE EVENT DATE: 20240701
